FAERS Safety Report 20850303 (Version 1)
Quarter: 2022Q2

REPORT INFORMATION
  Report Type: Spontaneous
  Country: US (occurrence: US)
  Receive Date: 20220519
  Receipt Date: 20220519
  Transmission Date: 20220721
  Serious: No
  Sender: FDA-Public Use
  Company Number: US-KALA PHARAMACEUTICALS-2022KLA00022

PATIENT
  Age: 69 Year
  Sex: Female
  Weight: 54.875 kg

DRUGS (4)
  1. EYSUVIS [Suspect]
     Active Substance: LOTEPREDNOL ETABONATE
     Indication: Conjunctivitis
     Dosage: UNK, IN THE LEFT EYE
     Route: 047
     Dates: start: 202203, end: 20220316
  2. VITAMIN D [Concomitant]
     Active Substance: VITAMIN D NOS
  3. CLOZAPINE [Concomitant]
     Active Substance: CLOZAPINE
  4. FAMOTIDINE [Concomitant]
     Active Substance: FAMOTIDINE

REACTIONS (4)
  - Toothache [Recovered/Resolved]
  - Eye pain [Recovered/Resolved]
  - Off label use [Recovered/Resolved]
  - Instillation site pain [Recovered/Resolved]

NARRATIVE: CASE EVENT DATE: 20220301
